FAERS Safety Report 21417556 (Version 1)
Quarter: 2022Q4

REPORT INFORMATION
  Report Type: Spontaneous
  Country: US (occurrence: US)
  Receive Date: 20221006
  Receipt Date: 20221006
  Transmission Date: 20230112
  Serious: Yes (Death, Life-Threatening, Other)
  Sender: FDA-Public Use
  Company Number: US-drreddys-LIT/USA/22/0155439

PATIENT
  Age: 20 Year
  Sex: Female

DRUGS (20)
  1. DECITABINE [Suspect]
     Active Substance: DECITABINE
     Indication: Acute myeloid leukaemia
     Dosage: FOURTH LINE THERAPY
  2. DECITABINE [Suspect]
     Active Substance: DECITABINE
     Dosage: FIFTH LINE THERAPY
  3. DECITABINE [Suspect]
     Active Substance: DECITABINE
     Dosage: SIXTH LINE THERAPY
  4. SORAFENIB [Suspect]
     Active Substance: SORAFENIB
     Indication: Acute myeloid leukaemia
  5. SUNITINIB MALATE [Suspect]
     Active Substance: SUNITINIB MALATE
     Indication: Acute myeloid leukaemia
     Dosage: FOURTH LINE THERAPY
  6. SUNITINIB MALATE [Suspect]
     Active Substance: SUNITINIB MALATE
     Dosage: FIFTH LINE THERAPY
  7. SUNITINIB MALATE [Suspect]
     Active Substance: SUNITINIB MALATE
     Dosage: SIXTH LINE THERAPY
  8. CYTARABINE [Suspect]
     Active Substance: CYTARABINE
     Indication: Acute myeloid leukaemia
  9. CYTARABINE [Suspect]
     Active Substance: CYTARABINE
     Dosage: FIRST LINE THERAPY WITH FLUDARABINE, CYTARABINE AND UNSPECIFIED GRANULOCYTE-COLONY-STIMULATING-FACTO
  10. CYTARABINE [Suspect]
     Active Substance: CYTARABINE
     Dosage: CYTARABINE, MITOXANTRONE AND MIDOSTAURIN
  11. DAUNORUBICIN [Suspect]
     Active Substance: DAUNORUBICIN
     Indication: Acute myeloid leukaemia
  12. ETOPOSIDE [Suspect]
     Active Substance: ETOPOSIDE
     Indication: Acute myeloid leukaemia
  13. FLUDARABINE [Suspect]
     Active Substance: FLUDARABINE PHOSPHATE
     Indication: Acute myeloid leukaemia
  14. GILTERITINIB [Suspect]
     Active Substance: GILTERITINIB
     Indication: Acute myeloid leukaemia
     Dosage: 120 MG/DAY FOR 1 CYCLE
  15. MITOXANTRONE [Suspect]
     Active Substance: MITOXANTRONE HYDROCHLORIDE
     Indication: Acute myeloid leukaemia
  16. MIDOSTAURIN [Suspect]
     Active Substance: MIDOSTAURIN
     Indication: Acute myeloid leukaemia
  17. VORINOSTAT [Suspect]
     Active Substance: VORINOSTAT
     Indication: Acute myeloid leukaemia
  18. VENETOCLAX [Suspect]
     Active Substance: VENETOCLAX
     Indication: Acute myeloid leukaemia
     Dosage: FIFTH LINE THERAPY
  19. VENETOCLAX [Suspect]
     Active Substance: VENETOCLAX
     Dosage: SIXTH LINE THERAPY
  20. unspecified granulocyte-colony-stimulating-factors [Concomitant]
     Indication: Acute myeloid leukaemia

REACTIONS (7)
  - Death [Fatal]
  - Thrombocytopenia [Unknown]
  - Leukaemia recurrent [Unknown]
  - Febrile neutropenia [Unknown]
  - Anaemia [Unknown]
  - Drug ineffective [Unknown]
  - Product use in unapproved indication [Unknown]
